FAERS Safety Report 8906193 (Version 1)
Quarter: 2012Q4

REPORT INFORMATION
  Report Type: Spontaneous
  Country: US (occurrence: None)
  Receive Date: 20121112
  Receipt Date: 20121112
  Transmission Date: 20130627
  Serious: Yes (Other)
  Sender: FDA-Public Use
  Company Number: None

PATIENT
  Age: 65 Year
  Sex: Male
  Weight: 148.78 kg

DRUGS (2)
  1. XARELTO [Suspect]
     Indication: CARDIAC ABLATION
     Dates: start: 20121019, end: 20121026
  2. XARELTO [Suspect]
     Indication: CARDIAC ABLATION
     Dates: start: 20121107, end: 20121109

REACTIONS (2)
  - Escherichia urinary tract infection [None]
  - Cystitis haemorrhagic [None]
